FAERS Safety Report 18082274 (Version 1)
Quarter: 2020Q3

REPORT INFORMATION
  Report Type: Spontaneous
  Country: US (occurrence: US)
  Receive Date: 20200728
  Receipt Date: 20200728
  Transmission Date: 20201103
  Serious: No
  Sender: FDA-Public Use
  Company Number: US-PERRIGO-19US013363

PATIENT
  Age: 42 Year
  Sex: Male
  Weight: 129.25 kg

DRUGS (3)
  1. MINOXIDIL. [Suspect]
     Active Substance: MINOXIDIL
     Indication: ALOPECIA
     Dosage: 1 ML, BID, FOR 3 WEEKS
     Route: 061
     Dates: start: 201907, end: 201907
  2. ANTIHYPERTENSIVES [Concomitant]
     Active Substance: UNSPECIFIED INGREDIENT
     Indication: HYPERTENSION
     Dosage: UNK
     Route: 065
  3. MINOXIDIL. [Suspect]
     Active Substance: MINOXIDIL
     Dosage: 1 ML, SINGLE
     Route: 061
     Dates: start: 201907, end: 201907

REACTIONS (3)
  - Application site rash [Recovered/Resolved]
  - Application site exfoliation [Recovered/Resolved]
  - Application site paraesthesia [Recovered/Resolved]

NARRATIVE: CASE EVENT DATE: 201907
